FAERS Safety Report 8649649 (Version 3)
Quarter: 2012Q4

REPORT INFORMATION
  Report Type: Report from Study
  Country: JP (occurrence: JP)
  Receive Date: 20120705
  Receipt Date: 20121002
  Transmission Date: 20130627
  Serious: Yes (Death, Life-Threatening, Other)
  Sender: FDA-Public Use
  Company Number: JP-CELGENEUS-087-50794-11083238

PATIENT
  Age: 67 Year
  Sex: Male
  Weight: 50 kg

DRUGS (45)
  1. VIDAZA [Suspect]
     Indication: MDS
     Dosage: 75 milligram/sq. meter
     Route: 058
     Dates: start: 20110523, end: 20110524
  2. VIDAZA [Suspect]
     Dosage: 75 milligram/sq. meter
     Route: 058
     Dates: start: 20110614, end: 20110620
  3. VIDAZA [Suspect]
     Dosage: 75 Milligram
     Route: 058
     Dates: start: 20110713, end: 20110719
  4. VIDAZA [Suspect]
     Dosage: 75 Milligram
     Route: 058
     Dates: start: 20110815, end: 20110821
  5. ZOFRAN [Concomitant]
     Indication: DRUG USE FOR UNKNOWN INDICATION
     Route: 065
     Dates: start: 20110523, end: 20110524
  6. ZOFRAN [Concomitant]
     Route: 065
     Dates: start: 20110614, end: 20110620
  7. ZOFRAN [Concomitant]
     Route: 065
     Dates: start: 20110713, end: 20110719
  8. ZOFRAN [Concomitant]
     Route: 065
     Dates: start: 20110815, end: 20110821
  9. BAKTAR [Concomitant]
     Indication: DRUG USE FOR UNKNOWN INDICATION
     Route: 065
  10. BAKTAR [Concomitant]
     Route: 065
     Dates: end: 20110907
  11. FLUCONAZOLE [Concomitant]
     Indication: DRUG USE FOR UNKNOWN INDICATION
     Route: 065
  12. FLUCONAZOLE [Concomitant]
     Route: 065
     Dates: end: 20110922
  13. ALLEGRA [Concomitant]
     Indication: DRUG USE FOR UNKNOWN INDICATION
     Route: 065
     Dates: start: 20110524
  14. ALLEGRA [Concomitant]
     Route: 065
     Dates: start: 20110718, end: 20110803
  15. ALLEGRA [Concomitant]
     Route: 065
     Dates: start: 20110824, end: 20110830
  16. GASTER [Concomitant]
     Indication: DRUG USE FOR UNKNOWN INDICATION
     Route: 065
  17. GASTER [Concomitant]
     Route: 065
     Dates: end: 20111012
  18. SPIRIVA [Concomitant]
     Indication: DRUG USE FOR UNKNOWN INDICATION
     Route: 065
  19. SPIRIVA [Concomitant]
     Route: 065
  20. ADOAIR [Concomitant]
     Indication: DRUG USE FOR UNKNOWN INDICATION
     Route: 065
  21. ADOAIR [Concomitant]
     Route: 065
  22. MAXIPIME [Concomitant]
     Indication: DRUG USE FOR UNKNOWN INDICATION
     Route: 065
     Dates: start: 20110525, end: 20110530
  23. MAXIPIME [Concomitant]
     Route: 065
     Dates: start: 20110907, end: 20110909
  24. G-CSF [Concomitant]
     Indication: NEUTROPENIA
     Route: 065
  25. ANTIBIOTICS [Concomitant]
     Indication: NEUTROPENIA
     Route: 065
  26. ANTIFUNGAL [Concomitant]
     Indication: NEUTROPENIA
     Route: 065
  27. BIO-THREE [Concomitant]
     Indication: DRUG USE FOR UNKNOWN INDICATION
     Route: 065
     Dates: end: 20111012
  28. KLARICID [Concomitant]
     Indication: DRUG USE FOR UNKNOWN INDICATION
     Route: 065
     Dates: end: 20110727
  29. CRAVIT [Concomitant]
     Indication: DRUG USE FOR UNKNOWN INDICATION
     Route: 065
     Dates: start: 20110715, end: 20110717
  30. GENINAX [Concomitant]
     Indication: DRUG USE FOR UNKNOWN INDICATION
     Route: 065
     Dates: start: 20110810, end: 20110815
  31. VFEND [Concomitant]
     Indication: DRUG USE FOR UNKNOWN INDICATION
     Route: 065
     Dates: start: 20110923, end: 20111004
  32. BENAMBAX [Concomitant]
     Indication: DRUG USE FOR UNKNOWN INDICATION
     Route: 065
     Dates: start: 20110907, end: 20110907
  33. NEUTROGIN [Concomitant]
     Indication: DRUG USE FOR UNKNOWN INDICATION
     Route: 065
     Dates: start: 20110909, end: 20110915
  34. NEUTROGIN [Concomitant]
     Route: 065
     Dates: start: 20110920, end: 20111103
  35. MEROPEN [Concomitant]
     Indication: DRUG USE FOR UNKNOWN INDICATION
     Route: 065
     Dates: start: 20110920, end: 20110922
  36. AMIKAMYCIN [Concomitant]
     Indication: DRUG USE FOR UNKNOWN INDICATION
     Route: 065
     Dates: start: 20110915, end: 20110922
  37. FUNGUARD [Concomitant]
     Indication: DRUG USE FOR UNKNOWN INDICATION
     Route: 065
     Dates: start: 20110915, end: 20110922
  38. FUNGUARD [Concomitant]
     Route: 065
     Dates: start: 20111007, end: 20111104
  39. FINIBAX [Concomitant]
     Indication: DRUG USE FOR UNKNOWN INDICATION
     Route: 065
     Dates: start: 20110923, end: 20111003
  40. TEICOPLANIN [Concomitant]
     Indication: DRUG USE FOR UNKNOWN INDICATION
     Route: 065
     Dates: start: 20110923, end: 20111003
  41. OMEGACIN [Concomitant]
     Indication: DRUG USE FOR UNKNOWN INDICATION
     Route: 065
     Dates: start: 20111003, end: 20111007
  42. OMEGACIN [Concomitant]
     Route: 065
     Dates: start: 20111014, end: 20111021
  43. ZOSYN [Concomitant]
     Indication: DRUG USE FOR UNKNOWN INDICATION
     Route: 065
     Dates: start: 20111007, end: 20111014
  44. TIENAM [Concomitant]
     Indication: DRUG USE FOR UNKNOWN INDICATION
     Route: 065
     Dates: start: 20111022, end: 20111104
  45. PLATELETS [Concomitant]
     Indication: PLATELET TRANSFUSION DEPENDENT
     Route: 065

REACTIONS (17)
  - Platelet count decreased [Fatal]
  - White blood cell count decreased [Fatal]
  - Neutrophil count decreased [Fatal]
  - Febrile neutropenia [Not Recovered/Not Resolved]
  - Anaemia [Not Recovered/Not Resolved]
  - Gastrointestinal haemorrhage [Not Recovered/Not Resolved]
  - Thrombocytopenia [Unknown]
  - White blood cell count decreased [Recovered/Resolved]
  - Neutropenia [Recovered/Resolved]
  - Lymphocyte count decreased [Not Recovered/Not Resolved]
  - Monocyte count decreased [Recovered/Resolved]
  - Hypokalaemia [Not Recovered/Not Resolved]
  - Haemoconcentration [Not Recovered/Not Resolved]
  - Hyperchloraemia [Not Recovered/Not Resolved]
  - Hyperphosphataemia [Not Recovered/Not Resolved]
  - Renal disorder [Not Recovered/Not Resolved]
  - Hypernatraemia [Recovered/Resolved]
